FAERS Safety Report 11517854 (Version 2)
Quarter: 2015Q4

REPORT INFORMATION
  Report Type: Spontaneous
  Country: US (occurrence: US)
  Receive Date: 20150917
  Receipt Date: 20151019
  Transmission Date: 20160304
  Serious: Yes (Other)
  Sender: FDA-Public Use
  Company Number: US-TEVA-593599USA

PATIENT
  Sex: Male

DRUGS (1)
  1. COPAXONE [Suspect]
     Active Substance: GLATIRAMER ACETATE
     Indication: MULTIPLE SCLEROSIS
     Dosage: UNKNOWN DOSE STRENGTH
     Route: 065
     Dates: start: 20150908

REACTIONS (6)
  - Multiple sclerosis relapse [Recovered/Resolved]
  - Vertigo [Recovered/Resolved]
  - Peroneal nerve palsy [Recovered/Resolved]
  - Muscular weakness [Recovered/Resolved]
  - Diplopia [Recovered/Resolved]
  - Hypoaesthesia [Recovered/Resolved]
